FAERS Safety Report 9174370 (Version 1)
Quarter: 2013Q1

REPORT INFORMATION
  Report Type: Spontaneous
  Country: US (occurrence: None)
  Receive Date: 20130313
  Receipt Date: 20130313
  Transmission Date: 20140127
  Serious: Yes (Hospitalization)
  Sender: FDA-Public Use
  Company Number: PI-09012

PATIENT
  Age: 69 Year
  Sex: Male

DRUGS (1)
  1. CHLORAPREP [Suspect]
     Indication: PREOPERATIVE CARE
     Route: 061
     Dates: start: 20121210

REACTIONS (3)
  - Postoperative wound infection [None]
  - Incisional drainage [None]
  - Staphylococcus test positive [None]
